FAERS Safety Report 23065099 (Version 1)
Quarter: 2023Q4

REPORT INFORMATION
  Report Type: Spontaneous
  Country: LT (occurrence: LT)
  Receive Date: 20231013
  Receipt Date: 20231013
  Transmission Date: 20240110
  Serious: Yes (Hospitalization)
  Sender: FDA-Public Use
  Company Number: None

PATIENT
  Age: 63 Year
  Sex: Female
  Weight: 52 kg

DRUGS (5)
  1. FULVESTRANT [Suspect]
     Active Substance: FULVESTRANT
     Indication: Prophylaxis
     Dosage: FULVESTRANT TEVA 250 MG SOLUTION FOR INJECTION IN A PRE-FILLED SYRINGE
  2. FULVESTRANT [Suspect]
     Active Substance: FULVESTRANT
     Indication: Neoplasm malignant
  3. RISEDRONATE SODIUM [Concomitant]
     Active Substance: RISEDRONATE SODIUM
     Indication: Product used for unknown indication
     Dosage: RISENDROS 35 MG FILM-COATED TABLETS
  4. LEVOTHYROXINE [Concomitant]
     Active Substance: LEVOTHYROXINE
     Indication: Product used for unknown indication
     Dosage: LEVOTHYROXINE 100 MICROGRAMS TABLETS
  5. ROSUVASTATIN CALCIUM [Concomitant]
     Active Substance: ROSUVASTATIN CALCIUM
     Indication: Product used for unknown indication
     Dosage: ROXARDI 10 MG FILM-COATED TABLETS

REACTIONS (1)
  - Anaphylactic shock [Unknown]
